FAERS Safety Report 12241463 (Version 3)
Quarter: 2016Q2

REPORT INFORMATION
  Report Type: Spontaneous
  Country: US (occurrence: US)
  Receive Date: 20160406
  Receipt Date: 20160517
  Transmission Date: 20160815
  Serious: Yes (Other)
  Sender: FDA-Public Use
  Company Number: US-PFIZER INC-2016179906

PATIENT
  Age: 59 Year
  Sex: Female
  Weight: 81.65 kg

DRUGS (3)
  1. FASLODEX [Concomitant]
     Active Substance: FULVESTRANT
     Indication: BREAST CANCER
     Dosage: 500 MG, MONTHLY
     Dates: start: 20160114
  2. IBRANCE [Suspect]
     Active Substance: PALBOCICLIB
     Indication: BREAST CANCER STAGE IV
     Dosage: 125 MG, ONCE A DAILY FOR 21 DAYS ON AND 7 DAYS OFF
     Route: 048
     Dates: start: 20160304, end: 20160317
  3. IBRANCE [Suspect]
     Active Substance: PALBOCICLIB
     Dosage: 100 MG, CYCLIC (DAILY, DAY1-21 OF 28)
     Route: 048

REACTIONS (4)
  - Full blood count decreased [Not Recovered/Not Resolved]
  - Disease progression [Unknown]
  - Neutropenia [Recovered/Resolved]
  - Breast cancer stage IV [Unknown]

NARRATIVE: CASE EVENT DATE: 20160317
